FAERS Safety Report 10538018 (Version 1)
Quarter: 2014Q4

REPORT INFORMATION
  Report Type: Spontaneous
  Country: US (occurrence: US)
  Receive Date: 20141023
  Receipt Date: 20141023
  Transmission Date: 20150529
  Serious: No
  Sender: FDA-Public Use
  Company Number: US-ENDO PHARMACEUTICALS INC.-AMIT20140022

PATIENT
  Sex: Female

DRUGS (7)
  1. HYDROCODONE BITARTATE AND ACETAMINOPHEN [Concomitant]
     Active Substance: ACETAMINOPHEN\HYDROCODONE BITARTRATE
     Indication: PRODUCT USED FOR UNKNOWN INDICATION
     Dosage: 10/325 MG
     Route: 065
  2. CLONAZEPAM. [Concomitant]
     Active Substance: CLONAZEPAM
     Dosage: UNKNOWN
     Route: 048
     Dates: start: 2013
  3. AMITRIPTYLINE HCL 10MG [Suspect]
     Active Substance: AMITRIPTYLINE
     Indication: FIBROMYALGIA
     Dosage: UNKNOWN
     Route: 048
  4. CLONAZEPAM. [Concomitant]
     Active Substance: CLONAZEPAM
     Indication: PALPITATIONS
     Dosage: UNKNOWN
     Route: 048
     Dates: start: 2013
  5. CYCLOBENZAPRINE HYDROCHLORIDE. [Concomitant]
     Active Substance: CYCLOBENZAPRINE HYDROCHLORIDE
     Indication: PRODUCT USED FOR UNKNOWN INDICATION
     Dosage: UNKNOWN
     Route: 048
  6. GABAPENTIN. [Concomitant]
     Active Substance: GABAPENTIN
     Indication: PRODUCT USED FOR UNKNOWN INDICATION
     Route: 065
  7. ALPRAZOLAM. [Concomitant]
     Active Substance: ALPRAZOLAM
     Indication: PRODUCT USED FOR UNKNOWN INDICATION
     Route: 048

REACTIONS (1)
  - Malaise [Unknown]
